FAERS Safety Report 6635429-4 (Version None)
Quarter: 2010Q1

REPORT INFORMATION
  Report Type: 
  Country: None (occurrence: None)
  Receive Date: 20100315
  Receipt Date: 20090415
  Transmission Date: 20100710
  Serious: No
  Sender: FDA-Public Use
  Company Number: US-ABBOTT-09P-163-0567028-00

PATIENT
  Sex: Female
  Weight: 40.86 kg

DRUGS (3)
  1. DEPAKOTE [Suspect]
     Indication: HEADACHE
     Dates: start: 20090331, end: 20090407
  2. LAMICTAL CD [Concomitant]
     Indication: DRUG USE FOR UNKNOWN INDICATION
     Dates: start: 20071001
  3. DEPO-PROVERA [Concomitant]
     Indication: DRUG USE FOR UNKNOWN INDICATION

REACTIONS (1)
  - CONVULSION [None]
